FAERS Safety Report 4853826-4 (Version None)
Quarter: 2005Q4

REPORT INFORMATION
  Report Type: 
  Country: None (occurrence: None)
  Receive Date: 20051213
  Receipt Date: 20051129
  Transmission Date: 20060501
  Serious: Yes (Hospitalization, Other)
  Sender: FDA-Public Use
  Company Number: 198330

PATIENT
  Age: 57 Year
  Sex: Female
  Weight: 63.5036 kg

DRUGS (5)
  1. AVONEX [Suspect]
     Indication: MULTIPLE SCLEROSIS
     Dosage: 30 UG; QW; IM
     Route: 030
     Dates: start: 20021101, end: 20031001
  2. AVONEX [Suspect]
     Indication: MULTIPLE SCLEROSIS
     Dosage: 30 UG; QW; IM
     Route: 030
     Dates: start: 20031001
  3. ATIVAN [Concomitant]
  4. DITROPAN [Concomitant]
  5. EFFEXOR [Concomitant]

REACTIONS (14)
  - BLOOD POTASSIUM DECREASED [None]
  - CARDIAC ARREST [None]
  - CATHETER RELATED COMPLICATION [None]
  - COLITIS ISCHAEMIC [None]
  - COLONIC POLYP [None]
  - CONDITION AGGRAVATED [None]
  - DIARRHOEA [None]
  - HAEMATOCHEZIA [None]
  - HAEMORRHAGE [None]
  - HIATUS HERNIA [None]
  - LOSS OF CONSCIOUSNESS [None]
  - MULTIPLE SCLEROSIS [None]
  - NAUSEA [None]
  - VOMITING [None]
